FAERS Safety Report 5428968-5 (Version None)
Quarter: 2007Q3

REPORT INFORMATION
  Report Type: 
  Country: None (occurrence: None)
  Receive Date: 20070829
  Receipt Date: 20060726
  Transmission Date: 20080115
  Serious: No
  Sender: FDA-Public Use
  Company Number: A0614049A

PATIENT
  Age: 55 Year
  Sex: Female

DRUGS (1)
  1. ACYCLOVIR [Suspect]
     Indication: DRUG USE FOR UNKNOWN INDICATION
     Route: 065

REACTIONS (1)
  - ALOPECIA [None]
